FAERS Safety Report 24293733 (Version 1)
Quarter: 2024Q3

REPORT INFORMATION
  Report Type: Spontaneous
  Country: US (occurrence: None)
  Receive Date: 20240906
  Receipt Date: 20240906
  Transmission Date: 20241016
  Serious: No
  Sender: DOMPE FARMACEUTICI
  Company Number: US-FARMAPROD-202402-0565

PATIENT
  Age: 72 Year
  Sex: Male

DRUGS (24)
  1. OXERVATE [Suspect]
     Active Substance: CENEGERMIN-BKBJ
     Indication: Neurotrophic keratopathy
     Route: 047
     Dates: start: 20240206
  2. OXERVATE [Suspect]
     Active Substance: CENEGERMIN-BKBJ
  3. TRAMADOL HCL [Concomitant]
     Active Substance: TRAMADOL HYDROCHLORIDE
  4. SINEMET 25-100 [Concomitant]
     Dosage: 25MG-100MG
  5. LIPITOR [Concomitant]
     Active Substance: ATORVASTATIN CALCIUM
  6. LASIX [Concomitant]
     Active Substance: FUROSEMIDE
  7. FLECAINIDE ACETATE [Concomitant]
     Active Substance: FLECAINIDE ACETATE
  8. LISINOPRIL [Concomitant]
     Active Substance: LISINOPRIL
  9. METHIMAZOLE [Concomitant]
     Active Substance: METHIMAZOLE
  10. TOPROL XL [Concomitant]
     Active Substance: METOPROLOL SUCCINATE
     Dosage: 24 HOUR
  11. VALTREX [Concomitant]
     Active Substance: VALACYCLOVIR HYDROCHLORIDE
  12. OMEPRAZOLE [Concomitant]
     Active Substance: OMEPRAZOLE
  13. GABAPENTIN [Concomitant]
     Active Substance: GABAPENTIN
  14. XARELTO [Concomitant]
     Active Substance: RIVAROXABAN
  15. PREVIDENT [Concomitant]
     Active Substance: SODIUM FLUORIDE
  16. ANUCORT-HC [Concomitant]
     Active Substance: HYDROCORTISONE ACETATE
     Dosage: RECTAL
  17. OFLOXACIN [Concomitant]
     Active Substance: OFLOXACIN
  18. BRIMONIDINE TARTRATE [Concomitant]
     Active Substance: BRIMONIDINE TARTRATE
  19. PREDNISOLONE [Concomitant]
     Active Substance: PREDNISOLONE
     Dosage: 15 MG/5 ML
  20. TIMOLOL MALEATE [Concomitant]
     Active Substance: TIMOLOL MALEATE
     Dosage: SOLUTION
  21. BIMATOPROST [Concomitant]
     Active Substance: BIMATOPROST
  22. VITAMINS [Concomitant]
     Active Substance: VITAMINS
  23. VITAMIN D3 [Concomitant]
     Active Substance: CHOLECALCIFEROL
  24. MAGNESIUM [Concomitant]
     Active Substance: MAGNESIUM

REACTIONS (2)
  - Eye irritation [Not Recovered/Not Resolved]
  - Eye pain [Unknown]
